FAERS Safety Report 9350192 (Version 3)
Quarter: 2013Q3

REPORT INFORMATION
  Report Type: Spontaneous
  Country: CH (occurrence: CH)
  Receive Date: 20130617
  Receipt Date: 20130703
  Transmission Date: 20140515
  Serious: Yes (Disabling, Other)
  Sender: FDA-Public Use
  Company Number: CH-AMGEN-CHESP2013041828

PATIENT
  Age: 64 Year
  Sex: Female
  Weight: 64 kg

DRUGS (11)
  1. NEULASTA [Suspect]
     Indication: NON-HODGKIN^S LYMPHOMA
     Dosage: 6 MG, ONE TIME DOSE
     Route: 058
     Dates: start: 20090403, end: 20090403
  2. NEULASTA [Suspect]
     Dosage: 6 MG, ONE TIME DOSE
     Route: 058
     Dates: start: 20130403, end: 20130403
  3. MABTHERA [Suspect]
     Indication: NON-HODGKIN^S LYMPHOMA
     Dosage: 600 MG, UNK
     Route: 041
     Dates: start: 20090401, end: 20090508
  4. MABTHERA [Suspect]
     Dosage: 600 MG, UNK
     Dates: start: 20130401
  5. ENDOXAN /00021101/ [Suspect]
     Indication: NON-HODGKIN^S LYMPHOMA
     Dosage: 1200 MG, UNK
     Route: 041
     Dates: start: 20090402, end: 20090509
  6. ENDOXAN /00021101/ [Suspect]
     Dosage: 1200 MG, UNK
     Route: 041
     Dates: start: 20130509
  7. ONCOVIN [Suspect]
     Indication: NON-HODGKIN^S LYMPHOMA
     Dosage: 2 MG, UNK
     Route: 040
     Dates: start: 20090402, end: 20090509
  8. ONCOVIN [Suspect]
     Dosage: 2 MG, UNK
     Route: 040
     Dates: start: 20130402
  9. ADRIBLASTIN [Concomitant]
     Indication: NON-HODGKIN^S LYMPHOMA
     Dosage: 90 MG, UNK
     Route: 040
     Dates: start: 20090402, end: 20090509
  10. ADRIBLASTIN [Concomitant]
     Dosage: 90 MG, UNK
     Route: 040
     Dates: start: 20130402
  11. PREDNISONE [Concomitant]
     Indication: NON-HODGKIN^S LYMPHOMA
     Dosage: 100 MG, 1 PER 1 DAY
     Route: 048
     Dates: start: 20090402, end: 20090406

REACTIONS (5)
  - Pain in extremity [Recovered/Resolved with Sequelae]
  - Polyneuropathy [Recovered/Resolved with Sequelae]
  - Dizziness [Recovered/Resolved with Sequelae]
  - Gait disturbance [Recovered/Resolved with Sequelae]
  - Hypoaesthesia [Recovered/Resolved with Sequelae]
